FAERS Safety Report 4988755-9 (Version None)
Quarter: 2006Q2

REPORT INFORMATION
  Report Type: 
  Country: None (occurrence: None)
  Receive Date: 20060502
  Receipt Date: 20060106
  Transmission Date: 20061013
  Serious: Yes (Other)
  Sender: FDA-Public Use
  Company Number: US-MERCK-0601USA00999

PATIENT
  Age: 52 Year
  Sex: Female
  Weight: 77 kg

DRUGS (13)
  1. VIOXX [Suspect]
     Indication: ARTHRITIS
     Route: 048
     Dates: start: 19990101
  2. KLONOPIN [Concomitant]
     Route: 065
     Dates: start: 20010101
  3. SERZONE [Concomitant]
     Route: 065
     Dates: start: 20010101, end: 20040701
  4. ULTRAM [Concomitant]
     Route: 065
  5. [THERAPY UNSPECIFIED] [Concomitant]
     Route: 065
  6. OXYCONTIN [Concomitant]
     Route: 065
  7. [THERAPY UNSPECIFIED] [Concomitant]
     Route: 065
  8. SALAGEN [Concomitant]
     Route: 065
  9. ZOSTRIX [Concomitant]
     Route: 065
  10. TRAZODONE HYDROCHLORIDE [Concomitant]
     Indication: SLEEP DISORDER
     Route: 065
     Dates: start: 20000113
  11. LODINE XL [Concomitant]
     Route: 065
     Dates: start: 20000113
  12. GLUCOSAMINE [Concomitant]
     Route: 065
  13. ALLEGRA [Concomitant]
     Indication: HYPERSENSITIVITY
     Route: 065

REACTIONS (17)
  - ABDOMINAL PAIN UPPER [None]
  - ASTHENIA [None]
  - ASTHMA [None]
  - BLOOD CHOLESTEROL INCREASED [None]
  - BRONCHITIS [None]
  - DENTAL CARIES [None]
  - DEPRESSION [None]
  - FEELING ABNORMAL [None]
  - FIBROMYALGIA [None]
  - GASTROOESOPHAGEAL REFLUX DISEASE [None]
  - INSOMNIA [None]
  - LETHARGY [None]
  - MYOCARDIAL INFARCTION [None]
  - SICCA SYNDROME [None]
  - SKIN LESION [None]
  - SLEEP APNOEA SYNDROME [None]
  - VISUAL FIELD DEFECT [None]
